FAERS Safety Report 5840374-8 (Version None)
Quarter: 2008Q3

REPORT INFORMATION
  Report Type: 
  Country: None (occurrence: None)
  Receive Date: 20080811
  Receipt Date: 20080804
  Transmission Date: 20090109
  Serious: Yes (Other)
  Sender: FDA-Public Use
  Company Number: US-MERCK-0808USA01258

PATIENT

DRUGS (2)
  1. JANUVIA [Suspect]
     Route: 048
  2. JANUMET [Suspect]
     Route: 048

REACTIONS (1)
  - PANCREATIC CARCINOMA [None]
